FAERS Safety Report 5012023-2 (Version None)
Quarter: 2006Q2

REPORT INFORMATION
  Report Type: 
  Country: None (occurrence: None)
  Receive Date: 20060524
  Receipt Date: 20060517
  Transmission Date: 20061013
  Serious: Yes (Death, Hospitalization)
  Sender: FDA-Public Use
  Company Number: 2005-BP-21836RO

PATIENT
  Age: 69 Year
  Sex: Male

DRUGS (8)
  1. METHOTREXATE [Suspect]
     Dosage: 12.5 MG PER WEEK, PO
     Route: 048
  2. CALCICHEW (CALCIUM CARBONATE) [Concomitant]
  3. ASPIRIN [Concomitant]
  4. PREDNISOLONE [Concomitant]
  5. FRUSEMIDE (FURSEMIDE) [Concomitant]
  6. ALENDRONATE (ALENDRONATE SODIUM) [Concomitant]
  7. MESALAMINE [Concomitant]
  8. LEUCOVORIN CALCIUM [Concomitant]

REACTIONS (3)
  - DYSPNOEA [None]
  - LETHARGY [None]
  - PANCYTOPENIA [None]
